FAERS Safety Report 9036394 (Version 1)
Quarter: 2013Q1

REPORT INFORMATION
  Report Type: Spontaneous
  Country: US (occurrence: None)
  Receive Date: 20130117
  Receipt Date: 20130117
  Transmission Date: 20140127
  Serious: Yes (Other)
  Sender: FDA-Public Use
  Company Number: None

PATIENT
  Age: 79 Year
  Sex: Male

DRUGS (1)
  1. GLEEVEC [Suspect]
     Indication: DRUG THERAPY
     Dosage: 100MG-2 TABLETS , QD, ORAL
     Route: 048
     Dates: start: 20120206, end: 20130108

REACTIONS (1)
  - Rash generalised [None]
